FAERS Safety Report 17500807 (Version 1)
Quarter: 2020Q1

REPORT INFORMATION
  Report Type: Spontaneous
  Country: US (occurrence: US)
  Receive Date: 20200305
  Receipt Date: 20200305
  Transmission Date: 20200409
  Serious: No
  Sender: FDA-Public Use
  Company Number: US-BAYER-2020-039135

PATIENT
  Age: 10 Year
  Sex: Female

DRUGS (1)
  1. CLARITIN [Suspect]
     Active Substance: LORATADINE
     Dosage: 10 ML, UNK
     Route: 048

REACTIONS (2)
  - Rhinorrhoea [Unknown]
  - Therapeutic product effect incomplete [Unknown]
